FAERS Safety Report 14127759 (Version 2)
Quarter: 2017Q4

REPORT INFORMATION
  Report Type: Report from Study
  Country: US (occurrence: US)
  Receive Date: 20171026
  Receipt Date: 20171114
  Transmission Date: 20180321
  Serious: Yes (Hospitalization, Other)
  Sender: FDA-Public Use
  Company Number: US-GILEAD-2017-0298963

PATIENT
  Age: 9 Year
  Sex: Female
  Weight: 29.3 kg

DRUGS (24)
  1. AMBRISENTAN [Suspect]
     Active Substance: AMBRISENTAN
     Indication: PULMONARY HYPERTENSION
     Dosage: 5 MG, QD
     Route: 048
     Dates: start: 20170915
  2. DIGOXIN. [Concomitant]
     Active Substance: DIGOXIN
  3. OCEAN NASAL [Concomitant]
  4. PROPAFENONE. [Concomitant]
     Active Substance: PROPAFENONE
  5. SILDENAFIL. [Concomitant]
     Active Substance: SILDENAFIL
  6. SPIRONOLACTONE. [Concomitant]
     Active Substance: SPIRONOLACTONE
  7. HEPARIN FLUSH [Concomitant]
     Active Substance: HEPARIN SODIUM
  8. AMBRISENTAN [Suspect]
     Active Substance: AMBRISENTAN
     Indication: TRICUSPID VALVE INCOMPETENCE
  9. FUROSEMIDE. [Concomitant]
     Active Substance: FUROSEMIDE
  10. AMBRISENTAN [Suspect]
     Active Substance: AMBRISENTAN
     Indication: HYPOPLASTIC LEFT HEART SYNDROME
  11. MILRINONE LACTATE IN DEXTROSE [Suspect]
     Active Substance: MILRINONE LACTATE
     Indication: PRODUCT USED FOR UNKNOWN INDICATION
     Dosage: 2.88 ML, Q1HR
     Route: 065
  12. FERROUS SULFATE. [Concomitant]
     Active Substance: FERROUS SULFATE
  13. TRILEPTAL [Concomitant]
     Active Substance: OXCARBAZEPINE
  14. AMBRISENTAN [Suspect]
     Active Substance: AMBRISENTAN
     Indication: ATRIAL FLUTTER
  15. ASPIRIN                            /00002701/ [Concomitant]
     Active Substance: ASPIRIN
  16. FLUTICASONE. [Concomitant]
     Active Substance: FLUTICASONE
  17. LISINOPRIL. [Concomitant]
     Active Substance: LISINOPRIL
  18. CHLOROTHIAZIDE. [Concomitant]
     Active Substance: CHLOROTHIAZIDE
  19. WARFARIN [Concomitant]
     Active Substance: WARFARIN
  20. ACETAMINOPHEN. [Concomitant]
     Active Substance: ACETAMINOPHEN
  21. ALBUTEROL                          /00139501/ [Concomitant]
     Active Substance: ALBUTEROL
  22. DEXTROSE + SODIUM CHLORIDE [Concomitant]
  23. METOPROLOL. [Concomitant]
     Active Substance: METOPROLOL
  24. ATENOLOL. [Concomitant]
     Active Substance: ATENOLOL

REACTIONS (12)
  - Fluid overload [Recovered/Resolved]
  - Off label use [Not Recovered/Not Resolved]
  - Pleural effusion [Unknown]
  - Tachypnoea [Recovered/Resolved]
  - Asthenia [Not Recovered/Not Resolved]
  - Cardiac failure [Not Recovered/Not Resolved]
  - Oedema [Not Recovered/Not Resolved]
  - Hypotension [Recovered/Resolved]
  - Ascites [Not Recovered/Not Resolved]
  - Hypoxia [Unknown]
  - Oedema peripheral [Unknown]
  - Dyspnoea [Unknown]

NARRATIVE: CASE EVENT DATE: 20170915
